FAERS Safety Report 7988815 (Version 2)
Quarter: 2012Q4

REPORT INFORMATION
  Report Type: 
  Country: CA (occurrence: CA)
  Receive Date: 20110613
  Receipt Date: 20121106
  Transmission Date: 20130627
  Serious: Yes (Death, Hospitalization)
  Sender: FDA-Public Use
  Company Number: PHMT2007CA01508

PATIENT
  Sex: Female

DRUGS (1)
  1. SANDOSTATIN LAR [Suspect]
     Indication: METASTASIS
     Dosage: 20 mg, QMO
     Route: 030
     Dates: start: 20041201, end: 20070531

REACTIONS (7)
  - Death [Fatal]
  - Intestinal obstruction [Unknown]
  - Pain [Unknown]
  - Influenza [Unknown]
  - Diarrhoea [Unknown]
  - Nausea [Unknown]
  - Abdominal pain upper [Unknown]
